FAERS Safety Report 14369539 (Version 1)
Quarter: 2018Q1

REPORT INFORMATION
  Report Type: Spontaneous
  Country: US (occurrence: US)
  Receive Date: 20180110
  Receipt Date: 20180110
  Transmission Date: 20180509
  Serious: No
  Sender: FDA-Public Use
  Company Number: US-DRREDDYS-USA/USA/17/0087404

PATIENT
  Age: 40 Year
  Sex: Male
  Weight: 61.2 kg

DRUGS (1)
  1. HABITROL [Suspect]
     Active Substance: NICOTINE
     Indication: SMOKING CESSATION THERAPY
     Route: 062

REACTIONS (8)
  - Muscle spasms [Not Recovered/Not Resolved]
  - Product quality issue [Unknown]
  - Treatment noncompliance [Unknown]
  - Incorrect drug administration duration [Unknown]
  - Nicotine dependence [Not Recovered/Not Resolved]
  - Dizziness [Not Recovered/Not Resolved]
  - Withdrawal syndrome [Not Recovered/Not Resolved]
  - Overdose [Unknown]
